FAERS Safety Report 7095889-4 (Version None)
Quarter: 2010Q4

REPORT INFORMATION
  Report Type: 
  Country: None (occurrence: None)
  Receive Date: 20101109
  Receipt Date: 20101109
  Transmission Date: 20110411
  Serious: Yes (Hospitalization, Other)
  Sender: FDA-Public Use
  Company Number: None

PATIENT
  Age: 89 Year
  Sex: Female
  Weight: 48.5802 kg

DRUGS (2)
  1. ACTONEL [Suspect]
     Indication: OSTEOPENIA
  2. ACTONEL [Suspect]
     Indication: OSTEOPOROSIS

REACTIONS (1)
  - FEMUR FRACTURE [None]
